FAERS Safety Report 19680630 (Version 10)
Quarter: 2022Q1

REPORT INFORMATION
  Report Type: Report from Study
  Country: IT (occurrence: IT)
  Receive Date: 20210810
  Receipt Date: 20220308
  Transmission Date: 20220424
  Serious: Yes (Hospitalization, Other)
  Sender: FDA-Public Use
  Company Number: NVSC2021IT105278

PATIENT
  Age: 43 Year
  Sex: Female

DRUGS (4)
  1. COSENTYX [Suspect]
     Active Substance: SECUKINUMAB
     Indication: Spondylitis
     Dosage: 300 MG, QW (EVERY 7 DAYS)
     Route: 065
     Dates: start: 20210401
  2. COSENTYX [Suspect]
     Active Substance: SECUKINUMAB
     Dosage: 300 MG, QMO
     Route: 065
  3. COSENTYX [Suspect]
     Active Substance: SECUKINUMAB
     Dosage: 300 MG, Q4W (EVERY 28 DAYS)
     Route: 065
  4. COSENTYX [Suspect]
     Active Substance: SECUKINUMAB
     Dosage: 300 MG (EVERY 28 DAYS)
     Route: 065

REACTIONS (34)
  - Gait inability [Unknown]
  - Syncope [Unknown]
  - COVID-19 [Recovered/Resolved]
  - Decreased immune responsiveness [Unknown]
  - Arthralgia [Unknown]
  - Back pain [Unknown]
  - Musculoskeletal pain [Unknown]
  - Pain [Unknown]
  - Weight increased [Unknown]
  - White blood cell count decreased [Unknown]
  - Metaplasia [Unknown]
  - Psoriasis [Unknown]
  - Corneal disorder [Unknown]
  - Pruritus [Unknown]
  - Intervertebral disc protrusion [Unknown]
  - Dysstasia [Unknown]
  - Muscle contracture [Unknown]
  - Myalgia [Not Recovered/Not Resolved]
  - Spinal pain [Unknown]
  - Illness [Unknown]
  - Eye disorder [Unknown]
  - Blister [Unknown]
  - Abdominal discomfort [Unknown]
  - Herpes virus infection [Unknown]
  - Pigmentation disorder [Unknown]
  - Fibromyalgia [Unknown]
  - Weight decreased [Unknown]
  - Perforation [Unknown]
  - Oral herpes [Unknown]
  - Diarrhoea [Unknown]
  - Gait disturbance [Unknown]
  - Back disorder [Unknown]
  - Product use in unapproved indication [Unknown]
  - Drug ineffective [Unknown]

NARRATIVE: CASE EVENT DATE: 20210501
